FAERS Safety Report 14538527 (Version 3)
Quarter: 2020Q4

REPORT INFORMATION
  Report Type: Other
  Country: US (occurrence: US)
  Receive Date: 20180216
  Receipt Date: 20201012
  Transmission Date: 20210113
  Serious: No
  Sender: FDA-Public Use
  Company Number: US-ROCHE-2072090

PATIENT
  Age: 43 Year
  Sex: Female
  Weight: 74.91 kg

DRUGS (9)
  1. OCREVUS [Suspect]
     Active Substance: OCRELIZUMAB
     Dosage: (PRESCRIBED AS 300 MG ON DAY 1 AND DAY 15 AND 600 MG ONCE IN 6 MONTHS).HER SECOND DOSE OF HER FIRST
     Route: 042
     Dates: start: 20200814
  2. OCREVUS [Suspect]
     Active Substance: OCRELIZUMAB
     Indication: RELAPSING-REMITTING MULTIPLE SCLEROSIS
     Dosage: ONGOING: UNKNOWN?MOST RECENT INFUSION WAS ON 05/FEB/2018
     Route: 042
     Dates: start: 201708
  3. TAMIFLU [Suspect]
     Active Substance: OSELTAMIVIR PHOSPHATE
     Indication: INFLUENZA
     Dosage: ONGOING: YES, FOR 10 DAYS
     Route: 048
     Dates: start: 20180207
  4. SUMATRIPTAN. [Concomitant]
     Active Substance: SUMATRIPTAN
     Indication: MIGRAINE
     Dosage: ONLY 9 A MONTH ;ONGOING, AS REQUIRED
     Route: 048
  5. GILENYA [Concomitant]
     Active Substance: FINGOLIMOD HYDROCHLORIDE
  6. RELPAX [Concomitant]
     Active Substance: ELETRIPTAN HYDROBROMIDE
     Indication: MIGRAINE
     Dosage: 9 PER MONTH ;ONGOING, AS REQUIRED
     Route: 048
  7. MAVENCLAD [Suspect]
     Active Substance: CLADRIBINE
     Indication: MIGRAINE
     Route: 065
     Dates: start: 201909
  8. GABAPENTIN. [Concomitant]
     Active Substance: GABAPENTIN
     Dosage: ONGOING
     Route: 048
  9. GABAPENTIN. [Concomitant]
     Active Substance: GABAPENTIN
     Indication: MIGRAINE
     Dosage: ONGOING
     Route: 048

REACTIONS (7)
  - Labyrinthitis [Not Recovered/Not Resolved]
  - Influenza [Not Recovered/Not Resolved]
  - Nodule [Unknown]
  - Infusion related reaction [Recovered/Resolved]
  - Malaise [Unknown]
  - Dental caries [Not Recovered/Not Resolved]
  - Nausea [Not Recovered/Not Resolved]

NARRATIVE: CASE EVENT DATE: 20180201
